FAERS Safety Report 18863669 (Version 1)
Quarter: 2021Q1

REPORT INFORMATION
  Report Type: Report from Study
  Country: SG (occurrence: SG)
  Receive Date: 20210208
  Receipt Date: 20210208
  Transmission Date: 20210420
  Serious: Yes (Death)
  Sender: FDA-Public Use
  Company Number: SG-ASTRAZENECA-2021A034924

PATIENT
  Age: 25477 Day

DRUGS (1)
  1. TAGRISSO [Suspect]
     Active Substance: OSIMERTINIB
     Indication: NON-SMALL CELL LUNG CANCER
     Route: 048
     Dates: start: 20191001, end: 20201231

REACTIONS (1)
  - Death [Fatal]

NARRATIVE: CASE EVENT DATE: 20201231
